FAERS Safety Report 8964338 (Version 1)
Quarter: 2012Q4

REPORT INFORMATION
  Report Type: 
  Country: US (occurrence: US)
  Receive Date: 20121214
  Receipt Date: 20121214
  Transmission Date: 20130627
  Serious: No
  Sender: FDA-Public Use
  Company Number: US-GLAXOSMITHKLINE-A0972023A

PATIENT
  Age: 85 Year
  Sex: Male

DRUGS (3)
  1. AVODART [Suspect]
     Indication: PROSTATE CANCER RECURRENT
     Dosage: 1CAP Per day
     Route: 048
     Dates: start: 20120325, end: 20120328
  2. MULTIPLE MEDICATIONS [Concomitant]
  3. HERBAL SUPPLEMENTS [Concomitant]

REACTIONS (2)
  - Diarrhoea [Recovering/Resolving]
  - Diarrhoea [Unknown]
